FAERS Safety Report 12843321 (Version 1)
Quarter: 2016Q4

REPORT INFORMATION
  Report Type: Spontaneous
  Country: IT (occurrence: IT)
  Receive Date: 20161013
  Receipt Date: 20161013
  Transmission Date: 20170207
  Serious: Yes (Other)
  Sender: FDA-Public Use
  Company Number: IT-TEVA-701109ACC

PATIENT
  Age: 49 Year
  Sex: Male
  Weight: 90 kg

DRUGS (2)
  1. OLANZAPINE. [Suspect]
     Active Substance: OLANZAPINE
     Indication: BIPOLAR DISORDER
     Dosage: 2.5 MILLIGRAM DAILY; 2.5 MG DAILY
     Route: 048
     Dates: start: 20160727, end: 20160730
  2. SEREUPIN - 20 MG COMPRESSE RIVESTITE CON FILM [Concomitant]
     Indication: BIPOLAR DISORDER
     Dosage: 20 MG
     Route: 048
     Dates: start: 20160101, end: 20160912

REACTIONS (2)
  - Rectal haemorrhage [Recovered/Resolved]
  - Rash [Recovered/Resolved with Sequelae]

NARRATIVE: CASE EVENT DATE: 20160730
